FAERS Safety Report 21002447 (Version 1)
Quarter: 2022Q2

REPORT INFORMATION
  Report Type: Spontaneous
  Country: US (occurrence: US)
  Receive Date: 20220624
  Receipt Date: 20220624
  Transmission Date: 20220720
  Serious: Yes (Hospitalization, Other)
  Sender: FDA-Public Use
  Company Number: US-CIPLA LTD.-2022US04062

PATIENT

DRUGS (13)
  1. OLANZAPINE [Suspect]
     Active Substance: OLANZAPINE
     Indication: Psychotic disorder
     Dosage: 5 MILLIGRAM, QD, WEEK 1
     Route: 065
  2. LURASIDONE [Suspect]
     Active Substance: LURASIDONE
     Indication: Psychotic disorder
     Dosage: 20 MILLIGRAM, QD (AT BEDTIME DURING WEEK 3)
     Route: 065
  3. LURASIDONE [Suspect]
     Active Substance: LURASIDONE
     Dosage: 20 MILLIGRAM, BID (DURING WEEK 8))
     Route: 065
  4. LURASIDONE [Suspect]
     Active Substance: LURASIDONE
     Dosage: 80 MILLIGRAM, BID
     Route: 065
  5. CITALOPRAM [Suspect]
     Active Substance: CITALOPRAM HYDROBROMIDE
     Indication: Psychotic disorder
     Dosage: 20 MILLIGRAM, QD (WEEK 1)
     Route: 065
  6. LAMOTRIGINE [Suspect]
     Active Substance: LAMOTRIGINE
     Indication: Psychotic disorder
     Dosage: 100 MG/D, UNK (WEEK 2)
     Route: 065
  7. LAMOTRIGINE [Suspect]
     Active Substance: LAMOTRIGINE
     Dosage: 50 MG, UNK (WEEK 4)
     Route: 065
  8. PERPHENAZINE [Suspect]
     Active Substance: PERPHENAZINE
     Indication: Psychotic disorder
     Dosage: 16 MILLIGRAM, BID (WEEK 1)
     Route: 065
  9. PERPHENAZINE [Suspect]
     Active Substance: PERPHENAZINE
     Dosage: 18 MILLIGRAM, BID (WEEK 2)
     Route: 065
  10. PERPHENAZINE [Suspect]
     Active Substance: PERPHENAZINE
     Dosage: 16 MILLIGRAM, BID (WEEK 3)
     Route: 065
  11. PERPHENAZINE [Suspect]
     Active Substance: PERPHENAZINE
     Dosage: 16 MILLIGRAM, BID (WEEK 4)
     Route: 065
  12. PERPHENAZINE [Suspect]
     Active Substance: PERPHENAZINE
     Dosage: 2 MILLIGRAM, BID
     Route: 065
  13. NALTREXONE [Suspect]
     Active Substance: NALTREXONE
     Indication: Psychotic disorder
     Dosage: 25 MILLIGRAM, QD (WEEK 3)
     Route: 065

REACTIONS (9)
  - Suicidal ideation [Unknown]
  - Weight increased [Unknown]
  - Treatment noncompliance [Unknown]
  - Drug ineffective [Unknown]
  - Vomiting [Recovered/Resolved]
  - Anger [Unknown]
  - Impaired self-care [Unknown]
  - Nausea [Recovered/Resolved]
  - Hypophagia [Unknown]
